FAERS Safety Report 5942280-7 (Version None)
Quarter: 2008Q4

REPORT INFORMATION
  Report Type: 
  Country: None (occurrence: None)
  Receive Date: 20081105
  Receipt Date: 20081022
  Transmission Date: 20090506
  Serious: Yes (Hospitalization, Disabling, Other)
  Sender: FDA-Public Use
  Company Number: DE-ELI_LILLY_AND_COMPANY-DE200808001786

PATIENT
  Sex: Female
  Weight: 99 kg

DRUGS (5)
  1. CYMBALTA [Suspect]
     Indication: DEPRESSION
     Dosage: 90 MG, DAILY (1/D)
     Route: 048
     Dates: start: 20071116, end: 20080625
  2. QUETIAPINE FUMARATE [Concomitant]
     Dosage: 200 MG, DAILY (1/D)
     Route: 048
     Dates: start: 20071116, end: 20080625
  3. MELPERONE [Concomitant]
     Dosage: 150 MG, DAILY (1/D)
     Route: 048
     Dates: start: 20070720, end: 20080720
  4. SEROQUEL [Concomitant]
  5. VENLAFAXINE HCL [Concomitant]

REACTIONS (2)
  - BLINDNESS [None]
  - RETINAL PIGMENT EPITHELIOPATHY [None]
